FAERS Safety Report 14298481 (Version 2)
Quarter: 2018Q1

REPORT INFORMATION
  Report Type: Report from Study
  Country: US (occurrence: US)
  Receive Date: 20171218
  Receipt Date: 20180102
  Transmission Date: 20180509
  Serious: Yes (Hospitalization)
  Sender: FDA-Public Use
  Company Number: US-ACTELION-A-NJ2017-155419

PATIENT
  Age: 71 Year
  Sex: Female
  Weight: 56.69 kg

DRUGS (6)
  1. ELIQUIS [Concomitant]
     Active Substance: APIXABAN
  2. ADCIRCA [Concomitant]
     Active Substance: TADALAFIL
  3. TRACLEER [Suspect]
     Active Substance: BOSENTAN
     Indication: PULMONARY HYPERTENSION
     Dosage: 125 MG, BID
     Route: 048
     Dates: start: 20160921
  4. UPTRAVI [Suspect]
     Active Substance: SELEXIPAG
     Indication: PULMONARY HYPERTENSION
     Dosage: 1000 MCG, BID
     Route: 048
  5. UPTRAVI [Suspect]
     Active Substance: SELEXIPAG
     Dosage: 800 MCG, BID
     Route: 048
  6. UPTRAVI [Suspect]
     Active Substance: SELEXIPAG
     Dosage: 600 MCG, BID
     Route: 048

REACTIONS (18)
  - Pneumonia [Recovering/Resolving]
  - Sepsis [Recovering/Resolving]
  - Weight increased [Unknown]
  - Disease progression [Unknown]
  - Irritability [Unknown]
  - Night sweats [Unknown]
  - Infection [Recovering/Resolving]
  - Anaemia [Unknown]
  - Red blood cell count decreased [Unknown]
  - Blood iron decreased [Unknown]
  - Fluid retention [Unknown]
  - Oedema peripheral [Unknown]
  - Dyspnoea [Unknown]
  - Therapy non-responder [Unknown]
  - Dizziness [Recovering/Resolving]
  - Balance disorder [Unknown]
  - Haemoglobin decreased [Unknown]
  - Flushing [Unknown]

NARRATIVE: CASE EVENT DATE: 20170613
